FAERS Safety Report 24192532 (Version 1)
Quarter: 2024Q3

REPORT INFORMATION
  Report Type: Spontaneous
  Country: IT (occurrence: IT)
  Receive Date: 20240809
  Receipt Date: 20240809
  Transmission Date: 20241017
  Serious: Yes (Other)
  Sender: PADAGIS
  Company Number: IT-PADAGIS-2024PAD01240

PATIENT

DRUGS (4)
  1. MESALAMINE [Suspect]
     Active Substance: MESALAMINE
     Indication: Abdominal discomfort
     Dosage: UNK
     Route: 065
  2. BUDESONIDE [Suspect]
     Active Substance: BUDESONIDE
     Indication: Abdominal discomfort
     Dosage: UNK
     Route: 065
  3. LINACLOTIDE [Suspect]
     Active Substance: LINACLOTIDE
     Indication: Abdominal discomfort
     Dosage: UNK
     Route: 065
  4. CANAKINUMAB [Suspect]
     Active Substance: CANAKINUMAB
     Indication: Tumour necrosis factor receptor-associated periodic syndrome
     Dosage: 150 MG, EVERY FOUR WEEKS
     Route: 065

REACTIONS (3)
  - Angina pectoris [Unknown]
  - Tachycardia [Not Recovered/Not Resolved]
  - Product use in unapproved indication [Unknown]
